FAERS Safety Report 7210220-9 (Version None)
Quarter: 2011Q1

REPORT INFORMATION
  Report Type: 
  Country: None (occurrence: None)
  Receive Date: 20110105
  Receipt Date: 20101229
  Transmission Date: 20110831
  Serious: Yes (Other)
  Sender: FDA-Public Use
  Company Number: US-AMGEN-USASP2010012300

PATIENT

DRUGS (2)
  1. ENBREL [Suspect]
     Indication: PSORIASIS
     Dates: start: 20091030
  2. METHOTREXATE [Concomitant]
     Dates: start: 20101101

REACTIONS (3)
  - VISUAL IMPAIRMENT [None]
  - METAMORPHOPSIA [None]
  - URINARY TRACT INFECTION [None]
